FAERS Safety Report 9323944 (Version 1)
Quarter: 2013Q2

REPORT INFORMATION
  Report Type: Spontaneous
  Country: CO (occurrence: CO)
  Receive Date: 20130603
  Receipt Date: 20130603
  Transmission Date: 20140414
  Serious: Yes (Death, Hospitalization, Other)
  Sender: FDA-Public Use
  Company Number: CO-BRISTOL-MYERS SQUIBB COMPANY-18930594

PATIENT
  Age: 56 Year
  Sex: Male

DRUGS (1)
  1. YERVOY [Suspect]
     Dosage: RECEIVED 3 CYCLES OF TREATMENT
     Dates: start: 20130221, end: 20130416

REACTIONS (4)
  - Death [Fatal]
  - Convulsion [Unknown]
  - Inflammation [Recovered/Resolved]
  - Mobility decreased [Recovered/Resolved]
